FAERS Safety Report 9714231 (Version 1)
Quarter: 2013Q4

REPORT INFORMATION
  Report Type: Spontaneous
  Country: US (occurrence: US)
  Receive Date: 20131126
  Receipt Date: 20131126
  Transmission Date: 20140711
  Serious: No
  Sender: FDA-Public Use
  Company Number: US-GILEAD-2008-0019492

PATIENT
  Sex: Male

DRUGS (2)
  1. LETAIRIS [Suspect]
     Route: 048
     Dates: start: 200806
  2. LETAIRIS [Suspect]
     Route: 048
     Dates: start: 200805

REACTIONS (3)
  - Face oedema [Not Recovered/Not Resolved]
  - Local swelling [Not Recovered/Not Resolved]
  - Weight increased [Not Recovered/Not Resolved]
